FAERS Safety Report 7469056-6 (Version None)
Quarter: 2011Q2

REPORT INFORMATION
  Report Type: 
  Country: None (occurrence: None)
  Receive Date: 20110510
  Receipt Date: 20110503
  Transmission Date: 20111010
  Serious: No
  Sender: FDA-Public Use
  Company Number: US-TEVA-280200USA

PATIENT
  Sex: Male
  Weight: 113.5 kg

DRUGS (1)
  1. PROAIR HFA [Suspect]
     Dates: start: 20110421, end: 20110421

REACTIONS (1)
  - BREATH ALCOHOL TEST POSITIVE [None]
